FAERS Safety Report 5586780-0 (Version None)
Quarter: 2008Q1

REPORT INFORMATION
  Report Type: 
  Country: None (occurrence: None)
  Receive Date: 20080110
  Receipt Date: 20080108
  Transmission Date: 20080703
  Serious: Yes (Life-Threatening, Hospitalization, Other)
  Sender: FDA-Public Use
  Company Number: FR-BRISTOL-MYERS SQUIBB COMPANY-13989496

PATIENT
  Age: 55 Year
  Sex: Male
  Weight: 75 kg

DRUGS (10)
  1. ABILIFY [Suspect]
     Indication: SCHIZOPHRENIA
     Dates: start: 20070606
  2. AMARYL [Concomitant]
     Indication: DIABETES MELLITUS
  3. BROMAZEPAM [Concomitant]
     Indication: ANXIETY
  4. GLUCOPHAGE [Concomitant]
  5. DAONIL [Concomitant]
  6. AVANDIA [Concomitant]
  7. HEMIGOXINE NATIVELLE [Concomitant]
  8. PREVISCAN [Concomitant]
  9. BISOPROLOL [Concomitant]
  10. PERINDOPRIL ERBUMINE [Concomitant]

REACTIONS (2)
  - HALLUCINATION, AUDITORY [None]
  - SUICIDE ATTEMPT [None]
